FAERS Safety Report 9767061 (Version 1)
Quarter: 2013Q4

REPORT INFORMATION
  Report Type: Spontaneous
  Country: US (occurrence: US)
  Receive Date: 20131217
  Receipt Date: 20131217
  Transmission Date: 20140711
  Serious: Yes (Other)
  Sender: FDA-Public Use
  Company Number: US-BAYER-2013-149434

PATIENT
  Age: 60 Year
  Sex: Male
  Weight: 83.9 kg

DRUGS (2)
  1. ALEVE CAPLET [Suspect]
     Dosage: UNK UNK, PRN
     Route: 048
  2. BAYER ASPIRIN REGIMEN ADULT LOW STRENGTH [Suspect]
     Dosage: 1 DF, QD
     Route: 048
     Dates: end: 2010

REACTIONS (3)
  - Gastritis erosive [Recovered/Resolved]
  - Abdominal discomfort [Recovered/Resolved]
  - Off label use [None]
